FAERS Safety Report 4458543-0 (Version None)
Quarter: 2004Q3

REPORT INFORMATION
  Report Type: 
  Country: None (occurrence: None)
  Receive Date: 20040922
  Receipt Date: 20040804
  Transmission Date: 20050211
  Serious: Yes (Hospitalization)
  Sender: FDA-Public Use
  Company Number: USA-2002-004936

PATIENT
  Age: 43 Year
  Sex: Female
  Weight: 87.1 kg

DRUGS (1)
  1. BETASERON [Suspect]
     Indication: MULTIPLE SCLEROSIS
     Dosage: 2 MIU, SUBCUTANEOUS
     Route: 058
     Dates: start: 20020918, end: 20020922

REACTIONS (2)
  - ASTHMA [None]
  - INFLUENZA LIKE ILLNESS [None]
